FAERS Safety Report 11246054 (Version 2)
Quarter: 2015Q3

REPORT INFORMATION
  Report Type: Spontaneous
  Country: TW (occurrence: TW)
  Receive Date: 20150708
  Receipt Date: 20150709
  Transmission Date: 20151125
  Serious: Yes (Hospitalization)
  Sender: FDA-Public Use
  Company Number: TW-ROCHE-1604706

PATIENT
  Age: 18 Year
  Sex: Female

DRUGS (3)
  1. AVASTIN [Suspect]
     Active Substance: BEVACIZUMAB
     Indication: GLIOBLASTOMA MULTIFORME
     Route: 065
     Dates: start: 2014, end: 2014
  2. TEMODAL [Suspect]
     Active Substance: TEMOZOLOMIDE
     Indication: GLIOBLASTOMA MULTIFORME
     Route: 065
     Dates: start: 2013, end: 2013
  3. TEMODAL [Suspect]
     Active Substance: TEMOZOLOMIDE
     Dosage: MONOTHERAPY FOR TWO MONTHS
     Route: 065
     Dates: start: 2014, end: 2014

REACTIONS (3)
  - Septic shock [Unknown]
  - Neoplasm [Unknown]
  - Bone marrow disorder [Unknown]

NARRATIVE: CASE EVENT DATE: 20150320
